FAERS Safety Report 6274898-9 (Version None)
Quarter: 2009Q3

REPORT INFORMATION
  Report Type: 
  Country: None (occurrence: None)
  Receive Date: 20090721
  Receipt Date: 20090714
  Transmission Date: 20100115
  Serious: Yes (Life-Threatening, Hospitalization)
  Sender: FDA-Public Use
  Company Number: SI-B.I. PHARMACEUTICALS,INC./RIDGEFIELD-2009-DE-04289BY

PATIENT
  Sex: Female
  Weight: 75 kg

DRUGS (8)
  1. PRITOR [Suspect]
     Indication: HYPERTENSION
     Dosage: 40 MG
     Route: 048
     Dates: start: 20081001, end: 20081218
  2. LACIPIL [Concomitant]
  3. LASIX [Concomitant]
  4. RAWEL SR [Concomitant]
  5. NEXIUM [Concomitant]
  6. TRAMUNDIN [Concomitant]
  7. AGLURAB [Concomitant]
  8. DIAPREL MR [Concomitant]

REACTIONS (1)
  - HYPERKALAEMIA [None]
